FAERS Safety Report 5690552-6 (Version None)
Quarter: 2008Q1

REPORT INFORMATION
  Report Type: 
  Country: None (occurrence: None)
  Receive Date: 20080331
  Receipt Date: 20080331
  Transmission Date: 20080703
  Serious: Yes (Life-Threatening, Disabling)
  Sender: FDA-Public Use
  Company Number: None

PATIENT
  Age: 47 Year
  Sex: Female
  Weight: 90.7194 kg

DRUGS (1)
  1. NORVASC [Suspect]
     Indication: BLOOD PRESSURE INCREASED
     Dosage: 5MG 1X PER DAY
     Dates: start: 20080202, end: 20080328

REACTIONS (5)
  - BLOOD PRESSURE INCREASED [None]
  - GINGIVAL SWELLING [None]
  - HEART RATE IRREGULAR [None]
  - PALPITATIONS [None]
  - SWELLING FACE [None]
